FAERS Safety Report 7995286-0 (Version None)
Quarter: 2011Q4

REPORT INFORMATION
  Report Type: 
  Country: None (occurrence: None)
  Receive Date: 20111220
  Receipt Date: 20111215
  Transmission Date: 20120403
  Serious: Yes (Hospitalization)
  Sender: FDA-Public Use
  Company Number: DE-ABBOTT-11P-062-0884032-00

PATIENT
  Sex: Male

DRUGS (3)
  1. HUMIRA [Suspect]
     Route: 058
     Dates: start: 20100101, end: 20100101
  2. HUMIRA [Suspect]
     Route: 058
     Dates: start: 20100101
  3. HUMIRA [Suspect]
     Indication: CROHN'S DISEASE
     Route: 058
     Dates: start: 20090301, end: 20100101

REACTIONS (8)
  - FISTULA [None]
  - PNEUMONIA [None]
  - DIARRHOEA [None]
  - ABSCESS [None]
  - HEPATIC INFECTION [None]
  - ABDOMINAL PAIN [None]
  - CROHN'S DISEASE [None]
  - APHTHOUS STOMATITIS [None]
